FAERS Safety Report 6829578-5 (Version None)
Quarter: 2010Q3

REPORT INFORMATION
  Report Type: 
  Country: None (occurrence: None)
  Receive Date: 20100709
  Receipt Date: 20070326
  Transmission Date: 20110219
  Serious: No
  Sender: FDA-Public Use
  Company Number: US-PFIZER INC-2007006741

PATIENT
  Age: 66 Year
  Sex: Female

DRUGS (2)
  1. CHANTIX [Suspect]
     Indication: SMOKING CESSATION THERAPY
     Dosage: 1 QID
     Route: 048
  2. CHANTIX [Suspect]
     Indication: NICOTINE DEPENDENCE

REACTIONS (1)
  - OEDEMA [None]
